FAERS Safety Report 18820434 (Version 1)
Quarter: 2021Q1

REPORT INFORMATION
  Report Type: Spontaneous
  Country: US (occurrence: US)
  Receive Date: 20210201
  Receipt Date: 20210201
  Transmission Date: 20210419
  Serious: Yes (Hospitalization)
  Sender: FDA-Public Use
  Company Number: None

PATIENT
  Age: 70 Year
  Sex: Male
  Weight: 72.6 kg

DRUGS (1)
  1. ISOVUE 300 [Suspect]
     Active Substance: IOPAMIDOL
     Indication: PANCREATIC MASS
     Dosage: ?          OTHER FREQUENCY:ONCE;?
     Route: 042

REACTIONS (1)
  - Vomiting [None]

NARRATIVE: CASE EVENT DATE: 20210127
